FAERS Safety Report 5720431-7 (Version None)
Quarter: 2008Q2

REPORT INFORMATION
  Report Type: 
  Country: None (occurrence: None)
  Receive Date: 20080428
  Receipt Date: 20080416
  Transmission Date: 20081010
  Serious: Yes (Hospitalization)
  Sender: FDA-Public Use
  Company Number: AU-PFIZER INC-2008034201

PATIENT
  Sex: Male

DRUGS (11)
  1. MARAVIROC [Suspect]
     Route: 048
  2. ASPIRIN [Concomitant]
     Route: 048
  3. PRAVASTATIN [Concomitant]
     Route: 048
  4. RABEPRAZOLE SODIUM [Concomitant]
     Route: 048
  5. FAMCICLOVIR [Concomitant]
     Route: 048
  6. CLOPIDOGREL [Concomitant]
     Route: 048
  7. TRITACE [Concomitant]
     Route: 048
  8. AVANZA [Concomitant]
     Route: 048
  9. RITONAVIR [Concomitant]
     Route: 048
  10. TRUVADA [Concomitant]
     Route: 048
  11. DARUNAVIR [Concomitant]
     Route: 048

REACTIONS (1)
  - CHEST PAIN [None]
